FAERS Safety Report 14502994 (Version 1)
Quarter: 2018Q1

REPORT INFORMATION
  Report Type: Spontaneous
  Country: US (occurrence: US)
  Receive Date: 20180208
  Receipt Date: 20180208
  Transmission Date: 20180509
  Serious: No
  Sender: FDA-Public Use
  Company Number: US-US WORLDMEDS, LLC-USW201610-000706

PATIENT
  Sex: Female

DRUGS (3)
  1. ELIQUIS [Suspect]
     Active Substance: APIXABAN
     Indication: ATRIAL FIBRILLATION
     Dates: start: 20160824
  2. NADOLOL. [Suspect]
     Active Substance: NADOLOL
     Dates: start: 20160824
  3. AMIODARONE [Suspect]
     Active Substance: AMIODARONE
     Dates: start: 20160824

REACTIONS (2)
  - Headache [Unknown]
  - Contusion [Unknown]
